FAERS Safety Report 8265369-9 (Version None)
Quarter: 2012Q2

REPORT INFORMATION
  Report Type: 
  Country: None (occurrence: None)
  Receive Date: 20120406
  Receipt Date: 20120405
  Transmission Date: 20120825
  Serious: Yes (Hospitalization)
  Sender: FDA-Public Use
  Company Number: KR-ABBOTT-11P-090-0694919-00

PATIENT
  Age: 32 Year
  Sex: Male

DRUGS (4)
  1. 3TC/AZT [Concomitant]
     Indication: ANTIRETROVIRAL THERAPY
     Dosage: 900 MG DAILY
     Dates: start: 20100427
  2. COMBIVIR [Concomitant]
     Indication: HIV INFECTION
     Dosage: 900 MG DAILY
     Route: 048
     Dates: start: 20100415
  3. KALETRA [Suspect]
     Indication: HIV INFECTION
     Dates: start: 20100429
  4. SK INFLUENZA VACCINE [Concomitant]
     Indication: INFLUENZA IMMUNISATION
     Dosage: 90 MCG/ML 3 ML
     Route: 030
     Dates: start: 20101014, end: 20101014

REACTIONS (4)
  - PRURITUS [None]
  - DIARRHOEA [None]
  - COUGH [None]
  - HERPES ZOSTER [None]
